FAERS Safety Report 22374722 (Version 1)
Quarter: 2023Q2

REPORT INFORMATION
  Report Type: Report from Study
  Country: US (occurrence: US)
  Receive Date: 20230526
  Receipt Date: 20230526
  Transmission Date: 20230722
  Serious: Yes (Hospitalization, Other)
  Sender: FDA-Public Use
  Company Number: US-GILEAD-2023-0629951

PATIENT
  Sex: Male

DRUGS (1)
  1. AZTREONAM LYSINE [Suspect]
     Active Substance: AZTREONAM LYSINE
     Indication: Cystic fibrosis
     Dosage: UNK, TID (INHALE 1 VIAL VIA ALTERA NEBULIZER 3 TIMES A DAY FOR 28 DAYS)
     Route: 055

REACTIONS (1)
  - Pulmonary thrombosis [Unknown]
